FAERS Safety Report 6578424-6 (Version None)
Quarter: 2010Q1

REPORT INFORMATION
  Report Type: 
  Country: None (occurrence: None)
  Receive Date: 20100211
  Receipt Date: 20100129
  Transmission Date: 20100710
  Serious: Yes (Death, Hospitalization, Other)
  Sender: FDA-Public Use
  Company Number: CA-MEDIMMUNE-MEDI-0009767

PATIENT
  Sex: Female
  Weight: 9.5 kg

DRUGS (12)
  1. SYNAGIS [Suspect]
     Route: 030
     Dates: start: 20091117, end: 20091117
  2. ENOXAPARIN SODIUM [Concomitant]
     Route: 058
  3. FUROSEMIDE [Concomitant]
  4. DIGOXIN [Concomitant]
  5. SPIRONOLACTONE [Concomitant]
  6. CLOPIDOGREL [Concomitant]
  7. LANSOPRAZOLE [Concomitant]
  8. OSELTAMIVIR [Concomitant]
  9. FLUTICASONE PROPIONATE [Concomitant]
  10. ALBUTEROL [Concomitant]
  11. PARACETAMOL [Concomitant]
  12. ACYCLOVIR [Concomitant]

REACTIONS (7)
  - CYANOSIS [None]
  - HYPOTONIA [None]
  - INFLUENZA LIKE ILLNESS [None]
  - PNEUMOCOCCAL SEPSIS [None]
  - PULMONARY HYPERTENSIVE CRISIS [None]
  - PULSE ABSENT [None]
  - RESPIRATORY ARREST [None]
